FAERS Safety Report 4500737-X (Version None)
Quarter: 2004Q4

REPORT INFORMATION
  Report Type: 
  Country: None (occurrence: None)
  Receive Date: 20041109
  Receipt Date: 20041027
  Transmission Date: 20050328
  Serious: Yes (Death, Life-Threatening)
  Sender: FDA-Public Use
  Company Number: 04H-163-0279346-00

PATIENT
  Age: 68 Year
  Sex: Male

DRUGS (13)
  1. MEPERIDINE HYDROCHLORIDE [Suspect]
     Dosage: 50 MG, ONCE, INTRAVENOUS
     Route: 042
     Dates: start: 20040117, end: 20040120
  2. LEVETIRACETAM [Suspect]
     Indication: HYPOAESTHESIA
     Dosage: 250 MG, BID, SEVERAL MONTHS AGO
  3. QUINAPRIL HCL [Concomitant]
  4. ACTUS [Concomitant]
  5. ACETYLSALICYLIC ACID [Concomitant]
  6. CLARINEX [Concomitant]
  7. FLEMEX [Concomitant]
  8. HYDROCHLOROTHIAZIDE [Concomitant]
  9. GABAPENTIN [Concomitant]
  10. CLOPIDOGREL BISULFATE [Concomitant]
  11. METOCLOPRAMIDE [Concomitant]
  12. METOPROLOL SUCCINATE [Concomitant]
  13. LANSOPRAZOLE [Concomitant]

REACTIONS (7)
  - ANOXIC ENCEPHALOPATHY [None]
  - CARDIAC ARREST [None]
  - COMA [None]
  - DRUG INTERACTION [None]
  - GENERAL PHYSICAL HEALTH DETERIORATION [None]
  - RESPIRATORY ARREST [None]
  - RESPIRATORY FAILURE [None]
